FAERS Safety Report 5169692-6 (Version None)
Quarter: 2006Q4

REPORT INFORMATION
  Report Type: 
  Country: None (occurrence: None)
  Receive Date: 20061212
  Receipt Date: 20061203
  Transmission Date: 20070319
  Serious: Yes (Disabling, Other)
  Sender: FDA-Public Use
  Company Number: PHEH2006US14894

PATIENT
  Age: 57 Year
  Sex: Male

DRUGS (5)
  1. DIOVAN HCT [Suspect]
     Indication: HYPERTENSION
     Dosage: UNK, UNK
  2. ATENOLOL [Suspect]
     Dosage: UNK, UNK
  3. TRAMADOL HCL [Suspect]
     Dosage: UNK, UNK
  4. GLIPIZIDE [Suspect]
     Dosage: UNK, UNK
  5. METFORMIN HYDROCHLORIDE [Suspect]
     Dosage: UNK, UNK

REACTIONS (3)
  - BLOOD PRESSURE FLUCTUATION [None]
  - DIABETIC NEUROPATHY [None]
  - HYPERTENSION [None]
